FAERS Safety Report 15627634 (Version 3)
Quarter: 2019Q4

REPORT INFORMATION
  Report Type: Spontaneous
  Country: US (occurrence: US)
  Receive Date: 20181116
  Receipt Date: 20191218
  Transmission Date: 20200122
  Serious: No
  Sender: FDA-Public Use
  Company Number: US-LEXICON PHARMACEUTICALS, INC-18-1606-01341

PATIENT
  Sex: Female

DRUGS (3)
  1. AFINITOR [Concomitant]
     Active Substance: EVEROLIMUS
     Route: 048
  2. XERMELO [Suspect]
     Active Substance: TELOTRISTAT ETHYL
     Indication: CARCINOID TUMOUR
     Route: 048
     Dates: start: 20180406
  3. LANREOTIDE [Concomitant]
     Active Substance: LANREOTIDE

REACTIONS (8)
  - Dysuria [Not Recovered/Not Resolved]
  - Anxiety [Unknown]
  - Decreased appetite [Unknown]
  - Insomnia [Unknown]
  - Diarrhoea [Unknown]
  - Depression [Unknown]
  - Blood pressure increased [Unknown]
  - Dysgeusia [Unknown]
